FAERS Safety Report 6394245-1 (Version None)
Quarter: 2009Q4

REPORT INFORMATION
  Report Type: 
  Country: None (occurrence: None)
  Receive Date: 20091006
  Receipt Date: 20090922
  Transmission Date: 20100525
  Serious: Yes (Other)
  Sender: FDA-Public Use
  Company Number: B0595909A

PATIENT
  Sex: 0

DRUGS (2)
  1. DIGOXIN [Suspect]
     Indication: ATRIAL FLUTTER
     Dosage: TRANSPLACENTARY
     Route: 064
  2. SOTALOL HCL [Suspect]
     Indication: ATRIAL FLUTTER
     Dosage: 160 MG TWICE PER DAY TRANSPLACEN
     Route: 064

REACTIONS (6)
  - ATRIAL FLUTTER [None]
  - CAESAREAN SECTION [None]
  - CARDIAC FAILURE [None]
  - HEART RATE INCREASED [None]
  - MATERNAL DRUGS AFFECTING FOETUS [None]
  - PULMONARY HYPERTENSION [None]
